FAERS Safety Report 24777908 (Version 1)
Quarter: 2024Q4

REPORT INFORMATION
  Report Type: Spontaneous
  Country: US (occurrence: US)
  Receive Date: 20241226
  Receipt Date: 20241226
  Transmission Date: 20250115
  Serious: No
  Sender: PFIZER
  Company Number: US-Novartis Pharma AG-NVSC2024US151110

PATIENT
  Sex: Female

DRUGS (50)
  1. IBRANCE [Suspect]
     Active Substance: PALBOCICLIB
     Dosage: 75 MG, CYCLIC (1 TABLET DAILY TAKE ON DAYS 1 THROUGH 21 OF A 28 DAY CYCLE)
     Route: 065
     Dates: start: 20240206
  2. ZOMETA [Suspect]
     Active Substance: ZOLEDRONIC ACID
     Dosage: UNK
  3. ZOLEDRONIC ACID [Suspect]
     Active Substance: ZOLEDRONIC ACID
     Dosage: UNK
  4. METHIMAZOLE [Concomitant]
     Active Substance: METHIMAZOLE
     Dosage: UNK (STRENGTH 10 MG)
  5. METHIMAZOLE [Concomitant]
     Active Substance: METHIMAZOLE
     Dosage: UNK (STRENGTH 5 MG)
  6. BACTRIM DS [Concomitant]
     Active Substance: SULFAMETHOXAZOLE\TRIMETHOPRIM
     Dosage: UNK
  7. ONDANSETRON HYDROCHLORIDE [Concomitant]
     Active Substance: ONDANSETRON HYDROCHLORIDE
     Dosage: UNK (STRENGTH 4 MG/ML)
  8. ONDANSETRON HYDROCHLORIDE [Concomitant]
     Active Substance: ONDANSETRON HYDROCHLORIDE
     Dosage: UNK (STRENGTH 8 MG)
  9. ONDANSETRON HYDROCHLORIDE [Concomitant]
     Active Substance: ONDANSETRON HYDROCHLORIDE
     Dosage: UNK (STRENGTH 2 MG/ML)
  10. ONDANSETRON HYDROCHLORIDE [Concomitant]
     Active Substance: ONDANSETRON HYDROCHLORIDE
     Dosage: UNK (STRENGTH 4 MG)
  11. VOLTAREN [Concomitant]
     Active Substance: DICLOFENAC SODIUM
     Indication: Arthritis
     Dosage: UNK (STRENGTH 75 MG)
  12. VOLTAREN [Concomitant]
     Active Substance: DICLOFENAC SODIUM
     Dosage: UNK (STRENGTH 0 %)
  13. VOLTAREN [Concomitant]
     Active Substance: DICLOFENAC SODIUM
     Dosage: UNK (STRENGTH 50 MG)
  14. VOLTAREN [Concomitant]
     Active Substance: DICLOFENAC SODIUM
     Dosage: UNK (STRENGTH 25 MG)
  15. DICLOFENAC DIETHYLAMINE [Concomitant]
     Active Substance: DICLOFENAC DIETHYLAMINE
     Dosage: UNK
  16. DILAUDID [Concomitant]
     Active Substance: HYDROMORPHONE HYDROCHLORIDE
     Dosage: UNK (STRENGTH 1 MG)
  17. DILAUDID [Concomitant]
     Active Substance: HYDROMORPHONE HYDROCHLORIDE
     Dosage: UNK (STRENGTH 4 MG)
  18. DILAUDID [Concomitant]
     Active Substance: HYDROMORPHONE HYDROCHLORIDE
     Dosage: UNK (STRENGTH 2 MG)
  19. DILAUDID [Concomitant]
     Active Substance: HYDROMORPHONE HYDROCHLORIDE
     Dosage: UNK (STRENGTH 1 MG)
  20. XGEVA [Concomitant]
     Active Substance: DENOSUMAB
     Dosage: UNK
  21. SYNTHROID [Concomitant]
     Active Substance: LEVOTHYROXINE SODIUM
     Dosage: UNK
  22. FEMARA [Concomitant]
     Active Substance: LETROZOLE
     Dosage: UNK
  23. NEXIUM [Concomitant]
     Active Substance: ESOMEPRAZOLE MAGNESIUM
     Dosage: UNK
  24. NEXIUM I.V. [Concomitant]
     Active Substance: ESOMEPRAZOLE SODIUM
     Dosage: UNK
  25. LEXAPRO [Concomitant]
     Active Substance: ESCITALOPRAM OXALATE
     Dosage: UNK (STRENGTH 10 MG)
  26. LEXAPRO [Concomitant]
     Active Substance: ESCITALOPRAM OXALATE
     Dosage: UNK (STRENGTH 20 MG)
  27. LEXAPRO [Concomitant]
     Active Substance: ESCITALOPRAM OXALATE
     Dosage: UNK (STRENGTH 5 MG)
  28. FERROUS SULFATE [Concomitant]
     Active Substance: FERROUS SULFATE
     Dosage: UNK (STRENGTH 325 MG)
  29. FERROUS SULFATE [Concomitant]
     Active Substance: FERROUS SULFATE
     Dosage: UNK (STRENGTH 220 MG)
  30. FERROUS SULFATE [Concomitant]
     Active Substance: FERROUS SULFATE
     Dosage: UNK (STRENGTH 160 MG)
  31. FERROUS SULFATE [Concomitant]
     Active Substance: FERROUS SULFATE
     Dosage: UNK (STRENGTH 75 MG)
  32. FERROUS SULFATE [Concomitant]
     Active Substance: FERROUS SULFATE
     Dosage: UNK (STRENGTH 13 MG)
  33. FERROUS SULFATE [Concomitant]
     Active Substance: FERROUS SULFATE
     Dosage: UNK (STRENGTH 140 MG)
  34. HERBALS\TURMERIC [Concomitant]
     Active Substance: HERBALS\TURMERIC
     Dosage: UNK
  35. HERBALS\TURMERIC [Concomitant]
     Active Substance: HERBALS\TURMERIC
     Dosage: UNK
  36. FISH OIL [Concomitant]
     Active Substance: FISH OIL
     Dosage: UNK (STRENGTH 1200 MG)
  37. FISH OIL [Concomitant]
     Active Substance: FISH OIL
     Dosage: UNK (STRENGTH 1000 MG)
  38. FISH OIL [COD-LIVER OIL] [Concomitant]
     Dosage: UNK
  39. MULTI VITAMIN [ARGININE HYDROCHLORIDE;ASCORBIC ACID;CALCIUM;CALCIUM PA [Concomitant]
     Dosage: UNK
  40. MULTI VITAMIN [ASCORBIC ACID;FOLIC ACID;NICOTINIC ACID;PYRIDOXINE HYDR [Concomitant]
     Dosage: UNK
  41. MAGNESIUM [Concomitant]
     Active Substance: MAGNESIUM
     Dosage: UNK
  42. MAGNESIUM OXIDE [Concomitant]
     Active Substance: MAGNESIUM OXIDE
     Dosage: UNK (STRENGTH 250 MG)
  43. MAGNESIUM OXIDE [Concomitant]
     Active Substance: MAGNESIUM OXIDE
     Dosage: UNK (STRENGTH 500 MG)
  44. MAGNESIUM [Concomitant]
     Active Substance: MAGNESIUM
     Dosage: UNK
  45. ZOCOR [Concomitant]
     Active Substance: SIMVASTATIN
     Dosage: UNK (STRENGTH 80 MG)
  46. ZOCOR [Concomitant]
     Active Substance: SIMVASTATIN
     Dosage: UNK (STRENGTH 40 MG)
  47. ZOCOR [Concomitant]
     Active Substance: SIMVASTATIN
     Dosage: UNK (STRENGTH 20 MG)
  48. ZOCOR [Concomitant]
     Active Substance: SIMVASTATIN
     Dosage: UNK (STRENGTH 5 MG)
  49. ZOCOR [Concomitant]
     Active Substance: SIMVASTATIN
     Dosage: UNK (STRENGTH 10 MG)
  50. TYLENOL [Concomitant]
     Active Substance: ACETAMINOPHEN
     Dosage: UNK

REACTIONS (5)
  - Back pain [Unknown]
  - Skin disorder [Unknown]
  - Weight decreased [Unknown]
  - Laboratory test abnormal [Unknown]
  - Full blood count decreased [Unknown]
